FAERS Safety Report 4726183-1 (Version None)
Quarter: 2005Q3

REPORT INFORMATION
  Report Type: 
  Country: None (occurrence: None)
  Receive Date: 20050725
  Receipt Date: 20050713
  Transmission Date: 20060218
  Serious: Yes (Other)
  Sender: FDA-Public Use
  Company Number: 2005099902

PATIENT
  Age: 14 Year
  Sex: Female
  Weight: 52.1637 kg

DRUGS (4)
  1. BENADRYL [Suspect]
     Indication: PRURITUS
     Dosage: 40 ML (50 MG) UP TO 3X DAILY PRN, ORAL
     Route: 048
  2. LORATIDINE (LORATADINE0 [Concomitant]
  3. SERETIDE MITE (FLUTICASONE PROPIONATE, SALMETEROL XINAFOATE) [Concomitant]
  4. MOMETASONE FUROATE [Concomitant]

REACTIONS (3)
  - PRURITUS [None]
  - SOMNOLENCE [None]
  - URTICARIA [None]
